FAERS Safety Report 13781102 (Version 1)
Quarter: 2017Q3

REPORT INFORMATION
  Report Type: Spontaneous
  Country: US (occurrence: US)
  Receive Date: 20170723
  Receipt Date: 20170723
  Transmission Date: 20171127
  Serious: Yes (Other)
  Sender: FDA-Public Use
  Company Number: None

PATIENT
  Age: 51 Year
  Sex: Male
  Weight: 87.7 kg

DRUGS (1)
  1. NINTEDANIB [Suspect]
     Active Substance: NINTEDANIB
     Indication: IDIOPATHIC PULMONARY FIBROSIS
     Dosage: ?          OTHER DOSE:MG;?
     Route: 048
     Dates: start: 20170320, end: 20170510

REACTIONS (5)
  - Aspartate aminotransferase increased [None]
  - Blood alkaline phosphatase increased [None]
  - Respiratory failure [None]
  - Alanine aminotransferase increased [None]
  - Hyponatraemia [None]

NARRATIVE: CASE EVENT DATE: 20170510
